FAERS Safety Report 9272232 (Version 1)
Quarter: 2013Q2

REPORT INFORMATION
  Report Type: Spontaneous
  Country: US (occurrence: US)
  Receive Date: 20130506
  Receipt Date: 20130506
  Transmission Date: 20140414
  Serious: Yes (Life-Threatening, Hospitalization)
  Sender: FDA-Public Use
  Company Number: PHEH2013US007271

PATIENT
  Age: 55 Year
  Sex: Female
  Weight: 60 kg

DRUGS (15)
  1. AFINITOR [Suspect]
     Indication: BREAST CANCER METASTATIC
     Dosage: 10 MG, DAILY
     Route: 048
     Dates: start: 20121029, end: 20130131
  2. AROMASIN [Concomitant]
     Indication: BREAST CANCER
     Dosage: 25 MG, UNK
     Route: 048
     Dates: start: 20121029, end: 20130112
  3. MORPHINE [Concomitant]
  4. SYNTHROID [Concomitant]
  5. EFFEXOR [Concomitant]
  6. NEURONTIN [Concomitant]
  7. REGLAN                                  /USA/ [Concomitant]
  8. ZOFRAN [Concomitant]
  9. NORTRIPTYLINE [Concomitant]
  10. AMBIEN CR [Concomitant]
  11. LEVOTHYROXINE [Concomitant]
     Dosage: 50 UG, DAILY
  12. MIRALAX [Concomitant]
     Dosage: 17 G, DAILY
  13. TRIAMCINOLONE [Concomitant]
  14. CHOLECALCIFEROL [Concomitant]
  15. AZITHROMYCIN [Concomitant]

REACTIONS (19)
  - Pneumonia [Recovered/Resolved]
  - Cardiac arrest [Unknown]
  - Aspiration [None]
  - Chest discomfort [Unknown]
  - Respiratory disorder [Unknown]
  - Acute respiratory failure [Unknown]
  - Cough [Recovered/Resolved]
  - Dyspnoea [Recovered/Resolved]
  - Hypoxia [Unknown]
  - Mucous membrane disorder [Unknown]
  - Malnutrition [Unknown]
  - Fatigue [Recovered/Resolved]
  - Decreased appetite [Unknown]
  - Abdominal pain [Unknown]
  - Rash [Unknown]
  - Oedema [Unknown]
  - Malaise [Unknown]
  - Diarrhoea [Unknown]
  - Asthenia [Unknown]
